FAERS Safety Report 9624430 (Version 1)
Quarter: 2013Q4

REPORT INFORMATION
  Report Type: Spontaneous
  Country: AU (occurrence: AU)
  Receive Date: 20131015
  Receipt Date: 20131015
  Transmission Date: 20140711
  Serious: Yes (Other)
  Sender: FDA-Public Use
  Company Number: AU-ABBVIE-13P-008-1157787-00

PATIENT
  Sex: Female

DRUGS (7)
  1. EPILIM [Suspect]
     Indication: PRODUCT USED FOR UNKNOWN INDICATION
  2. SABRIL [Suspect]
     Indication: PRODUCT USED FOR UNKNOWN INDICATION
  3. ENDEP [Concomitant]
     Indication: PRODUCT USED FOR UNKNOWN INDICATION
  4. ENDONE [Concomitant]
     Indication: PRODUCT USED FOR UNKNOWN INDICATION
  5. THYROXINE SODIUM [Concomitant]
     Indication: PRODUCT USED FOR UNKNOWN INDICATION
  6. RIVOTRIL [Concomitant]
     Indication: PRODUCT USED FOR UNKNOWN INDICATION
  7. TEMAZE [Concomitant]
     Indication: PRODUCT USED FOR UNKNOWN INDICATION

REACTIONS (1)
  - Delirium [Unknown]
